FAERS Safety Report 8339824-7 (Version None)
Quarter: 2012Q2

REPORT INFORMATION
  Report Type: 
  Country: None (occurrence: None)
  Receive Date: 20120507
  Receipt Date: 20120427
  Transmission Date: 20120825
  Serious: Yes (Hospitalization)
  Sender: FDA-Public Use
  Company Number: US-CELGENEUS-163-21880-12050047

PATIENT
  Sex: Male

DRUGS (1)
  1. REVLIMID [Suspect]
     Indication: MULTIPLE MYELOMA
     Dosage: 10 MILLIGRAM
     Route: 048
     Dates: start: 20120228

REACTIONS (6)
  - EYE PAIN [None]
  - JOINT SWELLING [None]
  - EAR PAIN [None]
  - CARDIAC FLUTTER [None]
  - TINNITUS [None]
  - PAIN IN JAW [None]
